FAERS Safety Report 12549397 (Version 1)
Quarter: 2016Q3

REPORT INFORMATION
  Report Type: Report from Study
  Country: JP (occurrence: JP)
  Receive Date: 20160712
  Receipt Date: 20160712
  Transmission Date: 20161109
  Serious: Yes (Death)
  Sender: FDA-Public Use
  Company Number: JP-SA-2016SA122094

PATIENT
  Age: 67 Year
  Sex: Male
  Weight: 74.6 kg

DRUGS (11)
  1. MUCOSTA [Concomitant]
     Active Substance: REBAMIPIDE
     Dates: start: 20131209, end: 20140217
  2. BENIDIPINE HYDROCHLORIDE [Concomitant]
     Active Substance: BENIDIPINE HYDROCHLORIDE
     Dosage: STRENGTH: 4 MG
     Dates: start: 20120808, end: 20140217
  3. GENTACIN [Concomitant]
     Active Substance: GENTAMICIN SULFATE
     Dosage: STRENGTH: 0.1%
     Dates: start: 20130720, end: 20140217
  4. BROTIZOLAM [Concomitant]
     Active Substance: BROTIZOLAM
     Dates: start: 20131224, end: 20140217
  5. BLOPRESS [Concomitant]
     Active Substance: CANDESARTAN CILEXETIL
     Dates: start: 20130123, end: 20140217
  6. PLAVIX [Suspect]
     Active Substance: CLOPIDOGREL BISULFATE
     Indication: ARTERIAL OCCLUSIVE DISEASE
     Route: 065
     Dates: start: 20120808, end: 20140217
  7. MAGNESIUM OXIDE. [Concomitant]
     Active Substance: MAGNESIUM OXIDE
     Dosage: STRENGTH: 330MG
     Dates: start: 20120821, end: 20140217
  8. PARIET [Concomitant]
     Active Substance: RABEPRAZOLE SODIUM
     Dosage: STRENGTH: 10MG
     Dates: start: 20130929, end: 20140217
  9. ATORVASTATIN [Concomitant]
     Active Substance: ATORVASTATIN
     Dosage: STRENGTH: 10MG
     Dates: start: 20131029, end: 20140217
  10. WHITE PETROLATUM [Concomitant]
     Active Substance: PETROLATUM
     Dates: start: 20131224, end: 20140217
  11. CELECOX [Concomitant]
     Active Substance: CELECOXIB
     Dates: start: 20131209, end: 20140217

REACTIONS (1)
  - Haemothorax [Fatal]

NARRATIVE: CASE EVENT DATE: 20140217
